FAERS Safety Report 8664330 (Version 2)
Quarter: 2012Q4

REPORT INFORMATION
  Report Type: Report from Study
  Country: JP (occurrence: JP)
  Receive Date: 20120713
  Receipt Date: 20121114
  Transmission Date: 20130627
  Serious: Yes (Hospitalization)
  Sender: FDA-Public Use
  Company Number: JP-JNJFOC-20120705829

PATIENT
  Age: 28 Year
  Sex: Female
  Weight: 56.7 kg

DRUGS (19)
  1. TOPINA [Suspect]
     Indication: EPILEPSY
     Route: 048
     Dates: start: 20080912, end: 20081009
  2. TOPINA [Suspect]
     Indication: EPILEPSY
     Route: 048
     Dates: start: 20080718, end: 20080911
  3. TOPINA [Suspect]
     Indication: EPILEPSY
     Route: 048
     Dates: start: 20080620, end: 20080717
  4. TOPINA [Suspect]
     Indication: EPILEPSY
     Route: 048
     Dates: start: 20080606, end: 20080619
  5. TOPINA [Suspect]
     Indication: EPILEPSY
     Route: 048
     Dates: start: 20080523, end: 20080605
  6. TOPINA [Suspect]
     Indication: EPILEPSY
     Route: 048
     Dates: start: 20080509, end: 20080522
  7. TOPINA [Suspect]
     Indication: EPILEPSY
     Route: 048
     Dates: start: 20080425, end: 20080508
  8. TOPINA [Suspect]
     Indication: EPILEPSY
     Route: 048
     Dates: start: 20080411, end: 20080424
  9. TOPINA [Suspect]
     Indication: EPILEPSY
     Route: 048
     Dates: start: 20081010, end: 20081106
  10. TOPINA [Suspect]
     Indication: EPILEPSY
     Route: 048
     Dates: start: 20081107, end: 20090313
  11. TEGRETOL [Suspect]
     Indication: EPILEPSY
     Route: 048
  12. GABAPENTIN [Suspect]
     Indication: EPILEPSY
     Route: 048
     Dates: start: 20080606, end: 20080619
  13. GABAPENTIN [Suspect]
     Indication: EPILEPSY
     Route: 048
     Dates: start: 20080523, end: 20080605
  14. GABAPENTIN [Suspect]
     Indication: EPILEPSY
     Route: 048
     Dates: start: 20080425, end: 20080508
  15. GABAPENTIN [Suspect]
     Indication: EPILEPSY
     Route: 048
     Dates: start: 20080620, end: 20080717
  16. GABAPENTIN [Suspect]
     Indication: EPILEPSY
     Route: 048
     Dates: start: 20080509, end: 20080522
  17. GABAPENTIN [Suspect]
     Indication: EPILEPSY
     Route: 048
     Dates: end: 20080424
  18. DIAMOX [Concomitant]
     Route: 048
     Dates: end: 20080410
  19. MYSTAN [Concomitant]
     Route: 048

REACTIONS (1)
  - Status epilepticus [Recovered/Resolved]
